FAERS Safety Report 8460727 (Version 3)
Quarter: 2017Q4

REPORT INFORMATION
  Report Type: Spontaneous
  Country: AU (occurrence: AU)
  Receive Date: 20120315
  Receipt Date: 20171116
  Transmission Date: 20180321
  Serious: Yes (Other)
  Sender: FDA-Public Use
  Company Number: AU-PFIZER INC-2012064852

PATIENT
  Age: 25 Year
  Sex: Female

DRUGS (4)
  1. CITALOPRAM [Interacting]
     Active Substance: CITALOPRAM HYDROBROMIDE
     Dosage: UNK
  2. DIAZEPAM. [Interacting]
     Active Substance: DIAZEPAM
     Dosage: UNK
  3. VENLAFAXINE HCL [Suspect]
     Active Substance: VENLAFAXINE HYDROCHLORIDE
     Indication: DEPRESSION
     Dosage: UNK
  4. CANNABIS [Interacting]
     Active Substance: CANNABIS SATIVA SUBSP. INDICA TOP
     Dosage: UNK

REACTIONS (8)
  - Akathisia [Recovered/Resolved]
  - Aggression [Recovered/Resolved]
  - Drug interaction [Recovered/Resolved]
  - Disturbance in social behaviour [Recovered/Resolved]
  - Suicide attempt [Recovered/Resolved]
  - Self-injurious ideation [Recovered/Resolved]
  - Attention-seeking behaviour [Recovered/Resolved]
  - Drug dependence [Recovered/Resolved]
